FAERS Safety Report 15592142 (Version 2)
Quarter: 2018Q4

REPORT INFORMATION
  Report Type: Report from Study
  Country: DO (occurrence: DO)
  Receive Date: 20181107
  Receipt Date: 20181122
  Transmission Date: 20190205
  Serious: Yes (Other)
  Sender: FDA-Public Use
  Company Number: PHHY2018DO148939

PATIENT
  Sex: Male
  Weight: 81.63 kg

DRUGS (2)
  1. DIOVAN [Suspect]
     Active Substance: VALSARTAN
     Indication: HYPERTENSION
     Dosage: 80 MG, QD
     Route: 048
  2. KEPPRA [Concomitant]
     Active Substance: LEVETIRACETAM
     Indication: PRODUCT USED FOR UNKNOWN INDICATION
     Dosage: 1500 MG, QD (1 TABLET IN THE MORNING, ORALLY, 500MG: 1 TABLET AT NIGHT ORALLY, 1000MG)
     Route: 048

REACTIONS (4)
  - Cerebrovascular accident [Recovering/Resolving]
  - Blood triglycerides decreased [Recovering/Resolving]
  - Speech disorder [Recovering/Resolving]
  - Gait disturbance [Recovering/Resolving]

NARRATIVE: CASE EVENT DATE: 2016
